FAERS Safety Report 11659073 (Version 1)
Quarter: 2015Q4

REPORT INFORMATION
  Report Type: Spontaneous
  Country: US (occurrence: US)
  Receive Date: 20151026
  Receipt Date: 20151026
  Transmission Date: 20160304
  Serious: No
  Sender: FDA-Public Use
  Company Number: US-MEDA-2010070067

PATIENT
  Age: 50 Year
  Sex: Male
  Weight: 113 kg

DRUGS (3)
  1. ASTEPRO [Suspect]
     Active Substance: AZELASTINE HYDROCHLORIDE
     Indication: PERENNIAL ALLERGY
     Dates: start: 20100727
  2. NASONEX [Suspect]
     Active Substance: MOMETASONE FUROATE
     Indication: PERENNIAL ALLERGY
     Dates: start: 20100727
  3. BENADRYL [Suspect]
     Active Substance: DIPHENHYDRAMINE HYDROCHLORIDE
     Indication: PERENNIAL ALLERGY
     Route: 048
     Dates: start: 20100727

REACTIONS (2)
  - Paraesthesia [Not Recovered/Not Resolved]
  - Dizziness [Not Recovered/Not Resolved]

NARRATIVE: CASE EVENT DATE: 20100728
